FAERS Safety Report 18415687 (Version 1)
Quarter: 2020Q4

REPORT INFORMATION
  Report Type: Spontaneous
  Country: CA (occurrence: CA)
  Receive Date: 20201022
  Receipt Date: 20201022
  Transmission Date: 20210114
  Serious: Yes (Other)
  Sender: FDA-Public Use
  Company Number: CA-PFIZER INC-2020406820

PATIENT
  Age: 27 Year
  Sex: Female

DRUGS (1)
  1. SUCCINYLCHOLINE CHLORIDE. [Suspect]
     Active Substance: SUCCINYLCHOLINE CHLORIDE
     Indication: INDUCTION OF ANAESTHESIA
     Route: 040

REACTIONS (3)
  - Neuromuscular block prolonged [Recovered/Resolved]
  - Pseudocholinesterase deficiency [Recovered/Resolved]
  - Apnoea [Recovered/Resolved]
